FAERS Safety Report 25293500 (Version 1)
Quarter: 2025Q2

REPORT INFORMATION
  Report Type: Spontaneous
  Country: US (occurrence: US)
  Receive Date: 20250510
  Receipt Date: 20250510
  Transmission Date: 20250717
  Serious: No
  Sender: SANOFI AVENTIS
  Company Number: US-SA-2025SA129478

PATIENT
  Age: 26 Year
  Sex: Male

DRUGS (6)
  1. DUPIXENT [Suspect]
     Active Substance: DUPILUMAB
     Indication: Dermatitis atopic
     Dosage: 300 MG, QOW
     Route: 058
     Dates: start: 20230413
  2. Allergy Relief [Concomitant]
  3. BENZONATATE [Concomitant]
     Active Substance: BENZONATATE
  4. CLOBETASOL [Concomitant]
     Active Substance: CLOBETASOL
  5. LORATADINE [Concomitant]
     Active Substance: LORATADINE
  6. PREDNISONE [Concomitant]
     Active Substance: PREDNISONE

REACTIONS (2)
  - Sleep disorder due to a general medical condition [Unknown]
  - Drug ineffective [Unknown]
